FAERS Safety Report 19415131 (Version 1)
Quarter: 2021Q2

REPORT INFORMATION
  Report Type: Spontaneous
  Country: PL (occurrence: PL)
  Receive Date: 20210614
  Receipt Date: 20210614
  Transmission Date: 20210717
  Serious: Yes (Other)
  Sender: FDA-Public Use
  Company Number: NVSC2021PL125547

PATIENT
  Age: 57 Year
  Sex: Female

DRUGS (3)
  1. METHOTREXATE. [Concomitant]
     Active Substance: METHOTREXATE
     Indication: PRODUCT USED FOR UNKNOWN INDICATION
     Dosage: UNK
     Route: 065
  2. SANDIMMUN NEORAL [Suspect]
     Active Substance: CYCLOSPORINE
     Indication: PSORIASIS
     Dosage: UNK UNK, QD, 100?300; DOSE UNIT: MG/D
     Route: 048
     Dates: start: 20080424, end: 2011
  3. EQUORAL [Suspect]
     Active Substance: CYCLOSPORINE
     Indication: PSORIASIS
     Dosage: UNK, QD, 100?300; DOSE UNIT: MG/D
     Route: 048
     Dates: start: 2011, end: 20150212

REACTIONS (3)
  - Glomerular filtration rate decreased [Recovered/Resolved]
  - Blood creatinine increased [Recovered/Resolved]
  - Blood pressure inadequately controlled [Recovered/Resolved]

NARRATIVE: CASE EVENT DATE: 20120702
